FAERS Safety Report 22655393 (Version 1)
Quarter: 2023Q2

REPORT INFORMATION
  Report Type: Spontaneous
  Country: CH (occurrence: CH)
  Receive Date: 20230629
  Receipt Date: 20230629
  Transmission Date: 20230721
  Serious: Yes (Other)
  Sender: FDA-Public Use
  Company Number: CH-SEATTLE GENETICS-2023SGN06179

PATIENT
  Sex: Female

DRUGS (1)
  1. TUKYSA [Suspect]
     Active Substance: TUCATINIB
     Indication: Product used for unknown indication
     Route: 065

REACTIONS (1)
  - Malignant neoplasm progression [Unknown]
